FAERS Safety Report 17665663 (Version 1)
Quarter: 2020Q2

REPORT INFORMATION
  Report Type: Spontaneous
  Country: FR (occurrence: FR)
  Receive Date: 20200414
  Receipt Date: 20200414
  Transmission Date: 20200713
  Serious: Yes (Other)
  Sender: FDA-Public Use
  Company Number: NVSC2020FR082167

PATIENT
  Sex: Female

DRUGS (11)
  1. TEMOZOLOMIDE. [Suspect]
     Active Substance: TEMOZOLOMIDE
     Dosage: ON DAY 1 AND 5; RECEIVED MORE THAN 13 CYCLES
     Route: 042
     Dates: start: 201801, end: 201807
  2. NAVELBINE [Suspect]
     Active Substance: VINORELBINE TARTRATE
     Indication: BENIGN LUNG NEOPLASM
     Dosage: RECEIVED ON DAY 1, 8 AND 15
     Route: 065
     Dates: start: 201702, end: 201705
  3. IFOSFAMIDE. [Suspect]
     Active Substance: IFOSFAMIDE
     Indication: BENIGN LUNG NEOPLASM
     Dosage: ON DAY 1 AND 2; ADMINISTERED EVERY 3 WEEKS
     Route: 065
     Dates: start: 201604, end: 201609
  4. ENDOXAN [Suspect]
     Active Substance: CYCLOPHOSPHAMIDE
     Indication: BENIGN LUNG NEOPLASM
     Dosage: 1 DF, QD
     Route: 065
     Dates: start: 201702, end: 201705
  5. TEMOZOLOMIDE. [Suspect]
     Active Substance: TEMOZOLOMIDE
     Indication: BENIGN LUNG NEOPLASM
     Dosage: ON DAY 1 AND 5; ADMINISTERED EVERY 3 WEEKS
     Route: 042
     Dates: start: 201604, end: 201609
  6. BEVACIZUMAB. [Suspect]
     Active Substance: BEVACIZUMAB
     Indication: BENIGN LUNG NEOPLASM
     Dosage: (RECEIVED SIX MONTHS POST TOPOTECAN AND TEMOZOLOMIDE INITIATION; RECEIVED MORE THAN 6 CYCLES)
     Route: 042
  7. YONDELIS [Suspect]
     Active Substance: TRABECTEDIN
     Indication: BENIGN LUNG NEOPLASM
     Dosage: RECEIVED IN EVERY 3 WEEKS
     Route: 065
     Dates: start: 201705, end: 201711
  8. VINCRISTINE [Suspect]
     Active Substance: VINCRISTINE
     Indication: BENIGN LUNG NEOPLASM
     Dosage: ON DAY 1; ADMINISTERED EVERY 3 WEEKS
     Route: 065
     Dates: start: 201604, end: 201609
  9. ACTINOMYCIN D [Suspect]
     Active Substance: DACTINOMYCIN
     Indication: BENIGN LUNG NEOPLASM
     Dosage: ON DAY 1; ADMINISTERED EVERY 3 WEEKS
     Route: 065
     Dates: start: 201604, end: 201609
  10. TOPOTECAN [Suspect]
     Active Substance: TOPOTECAN HYDROCHLORIDE
     Indication: BENIGN LUNG NEOPLASM
     Dosage: RECEIVED ON DAY 1 AND 5; RECEIVED }13 CYCLES
     Route: 042
     Dates: start: 201801, end: 201807
  11. IRINOTECAN [Suspect]
     Active Substance: IRINOTECAN
     Indication: BENIGN LUNG NEOPLASM
     Dosage: ON DAY 1 AND 5; ADMINISTERED EVERY 3 WEEKS
     Route: 042
     Dates: start: 201604, end: 201609

REACTIONS (6)
  - Vomiting [Unknown]
  - Chronic respiratory disease [Unknown]
  - Nausea [Unknown]
  - Product use in unapproved indication [Unknown]
  - Neutropenia [Unknown]
  - Off label use [Unknown]
